FAERS Safety Report 5421441-X (Version None)
Quarter: 2007Q3

REPORT INFORMATION
  Report Type: 
  Country: None (occurrence: None)
  Receive Date: 20070821
  Receipt Date: 20070807
  Transmission Date: 20080115
  Serious: No
  Sender: FDA-Public Use
  Company Number: US-BOEHRINGER INGELHEIM PHARMACEUTICALS, INC.-2007-BP-17991BP

PATIENT
  Age: 32 Year
  Sex: Female
  Weight: 120 kg

DRUGS (2)
  1. MIRAPEX [Suspect]
     Indication: RESTLESS LEGS SYNDROME
  2. CLONIDINE [Concomitant]
     Route: 048

REACTIONS (1)
  - BONE PAIN [None]
